FAERS Safety Report 4933559-6 (Version None)
Quarter: 2006Q1

REPORT INFORMATION
  Report Type: 
  Country: None (occurrence: None)
  Receive Date: 20060306
  Receipt Date: 20060223
  Transmission Date: 20060701
  Serious: Yes (Hospitalization)
  Sender: FDA-Public Use
  Company Number: PHRM2006FR00881

PATIENT
  Age: 71 Year
  Sex: Male

DRUGS (4)
  1. LESCOL [Suspect]
     Indication: TYPE IIA HYPERLIPIDAEMIA
     Route: 048
     Dates: start: 20050901, end: 20051208
  2. MEDIATOR [Concomitant]
     Route: 048
  3. MAXEPA [Concomitant]
     Route: 048
  4. PYOSTACINE [Suspect]
     Route: 048
     Dates: start: 20051207, end: 20051208

REACTIONS (11)
  - ALANINE AMINOTRANSFERASE INCREASED [None]
  - C-REACTIVE PROTEIN INCREASED [None]
  - DERMATITIS EXFOLIATIVE [None]
  - EYELID OEDEMA [None]
  - FACE OEDEMA [None]
  - GAMMA-GLUTAMYLTRANSFERASE INCREASED [None]
  - INFLAMMATION [None]
  - RASH PUSTULAR [None]
  - SKIN FISSURES [None]
  - SKIN INFECTION [None]
  - WHITE BLOOD CELL COUNT INCREASED [None]
